FAERS Safety Report 5688968-7 (Version None)
Quarter: 2008Q1

REPORT INFORMATION
  Report Type: 
  Country: None (occurrence: None)
  Receive Date: 20080331
  Receipt Date: 20060922
  Transmission Date: 20080703
  Serious: Yes (Death, Hospitalization)
  Sender: FDA-Public Use
  Company Number: GB-ROCHE-464892

PATIENT
  Age: 54 Year
  Sex: Male
  Weight: 61 kg

DRUGS (28)
  1. MYCOPHENOLATE MOFETIL [Suspect]
     Route: 048
     Dates: start: 20060719, end: 20060722
  2. ALFENTANIL [Concomitant]
     Indication: SEDATION
     Route: 042
     Dates: start: 20060429, end: 20060502
  3. AMOXICILLIN [Concomitant]
     Indication: INFECTION PROPHYLAXIS
     Route: 042
     Dates: start: 20060712, end: 20060722
  4. AZATHIOPRINE [Concomitant]
     Route: 048
     Dates: start: 20060429, end: 20060503
  5. CALCIUM [Concomitant]
     Indication: HYPERTENSION
     Route: 048
     Dates: start: 20060517, end: 20060520
  6. CEFTRIAXONE [Concomitant]
     Route: 042
     Dates: start: 20060521
  7. CYCLOSPORINE [Concomitant]
     Route: 048
     Dates: start: 20060526, end: 20060706
  8. CO-TRIMOXAZOLE [Concomitant]
     Indication: INFECTION
     Route: 048
     Dates: start: 20060430
  9. DIORALYTE [Concomitant]
     Indication: ELECTROLYTE DEPLETION
     Route: 048
     Dates: start: 20060717
  10. FLUCONAZOLE [Concomitant]
     Indication: PROPHYLAXIS
     Route: 048
     Dates: start: 20060429
  11. HYDROCORTONE [Concomitant]
     Route: 042
     Dates: start: 20060429, end: 20060505
  12. FUROSEMIDE [Concomitant]
     Indication: ASCITES
     Route: 048
     Dates: start: 20060522
  13. INSULIN [Concomitant]
     Route: 042
     Dates: start: 20000430, end: 20060303
  14. LOPERAMIDE HCL [Concomitant]
     Indication: DIARRHOEA
     Route: 048
     Dates: start: 20060718
  15. MEROPENEM [Concomitant]
     Indication: INFECTION
     Route: 042
     Dates: start: 20060508, end: 20060518
  16. METHYLCELLULOSE [Concomitant]
     Route: 048
     Dates: start: 20060718, end: 20060724
  17. METHYLPREDNISOLONE [Concomitant]
     Route: 042
     Dates: start: 20060620, end: 20060622
  18. MOVICOL [Concomitant]
     Route: 048
     Dates: start: 20060519
  19. NEFOPAM [Concomitant]
     Route: 048
     Dates: start: 20060718
  20. OMEPRAZOLE [Concomitant]
     Indication: ACIDOSIS
     Route: 048
  21. ACETAMINOPHEN [Concomitant]
     Route: 048
     Dates: start: 20060505
  22. PREDNISOLONE [Concomitant]
     Route: 048
     Dates: start: 20060515
  23. PROPOFOL [Concomitant]
     Indication: SEDATION
     Route: 042
     Dates: start: 20060429, end: 20060501
  24. RANITIDINE [Concomitant]
     Indication: ACIDOSIS
     Route: 042
     Dates: start: 20060429, end: 20060504
  25. SALBUTAMOL [Concomitant]
     Indication: HYPERTENSION
     Dates: start: 20060521, end: 20060523
  26. SPIRONOLACTONE [Concomitant]
     Indication: OEDEMA
     Route: 048
     Dates: start: 20060629
  27. TACROLIMUS [Concomitant]
     Route: 048
     Dates: start: 20060430, end: 20060722
  28. VANCOMYCIN [Concomitant]
     Indication: INFECTION
     Route: 042
     Dates: start: 20060508, end: 20060518

REACTIONS (3)
  - DEATH [None]
  - NEUTROPENIA [None]
  - SEPSIS [None]
